FAERS Safety Report 7334030-7 (Version None)
Quarter: 2011Q1

REPORT INFORMATION
  Report Type: 
  Country: None (occurrence: None)
  Receive Date: 20110307
  Receipt Date: 20110223
  Transmission Date: 20110831
  Serious: Yes (Hospitalization, Other)
  Sender: FDA-Public Use
  Company Number: JP-BAYER-200911472BYL

PATIENT
  Age: 45 Year
  Sex: Male
  Weight: 62 kg

DRUGS (10)
  1. NEXAVAR [Suspect]
     Dosage: 200 MG (DAILY DOSE), , ORAL
     Route: 048
     Dates: start: 20090711, end: 20090722
  2. NEXAVAR [Suspect]
     Indication: RENAL CELL CARCINOMA
     Route: 048
     Dates: start: 20090402, end: 20090409
  3. NEXAVAR [Suspect]
     Dosage: 600 MG (DAILY DOSE), , ORAL
     Route: 048
     Dates: start: 20090822, end: 20090914
  4. RHYTHMY [Concomitant]
     Dosage: 1 MG (DAILY DOSE), , ORAL
     Route: 048
     Dates: start: 20090423, end: 20090509
  5. NEXAVAR [Suspect]
     Dosage: 400 MG (DAILY DOSE), , ORAL
     Route: 048
     Dates: start: 20090423, end: 20090423
  6. MUCOSTA [Concomitant]
     Indication: PROPHYLAXIS AGAINST GASTROINTESTINAL ULCER
     Dosage: 300 MG (DAILY DOSE), , ORAL
     Route: 048
     Dates: start: 20090413, end: 20090512
  7. NEXAVAR [Suspect]
     Route: 048
     Dates: start: 20090508, end: 20090710
  8. NEXAVAR [Suspect]
     Dosage: 400 MG (DAILY DOSE), , ORAL
     Route: 048
     Dates: start: 20090723, end: 20090821
  9. GASLON N [Concomitant]
     Indication: PROPHYLAXIS AGAINST GASTROINTESTINAL ULCER
     Dosage: 4 MG (DAILY DOSE), , ORAL
     Route: 048
     Dates: start: 20090710
  10. HYPEN [Concomitant]
     Dosage: 400 MG (DAILY DOSE), , ORAL
     Route: 048
     Dates: start: 20090710

REACTIONS (13)
  - ERYTHEMA MULTIFORME [None]
  - ALOPECIA [None]
  - ASPARTATE AMINOTRANSFERASE INCREASED [None]
  - WHITE BLOOD CELL COUNT DECREASED [None]
  - C-REACTIVE PROTEIN INCREASED [None]
  - BILIRUBINURIA [None]
  - PLEURAL EFFUSION [None]
  - FLUSHING [None]
  - PALMAR-PLANTAR ERYTHRODYSAESTHESIA SYNDROME [None]
  - LIPASE INCREASED [None]
  - BLOOD PHOSPHORUS DECREASED [None]
  - DIARRHOEA [None]
  - HAEMOGLOBIN DECREASED [None]
